FAERS Safety Report 25755357 (Version 1)
Quarter: 2025Q3

REPORT INFORMATION
  Report Type: Spontaneous
  Country: US (occurrence: US)
  Receive Date: 20250903
  Receipt Date: 20250903
  Transmission Date: 20251021
  Serious: No
  Sender: Kenvue
  Company Number: US-KENVUE-20250802361

PATIENT
  Sex: Female
  Weight: 57.6 kg

DRUGS (38)
  1. TYLENOL [Suspect]
     Active Substance: ACETAMINOPHEN
     Indication: Headache
     Route: 065
  2. TYVASO DPI [Concomitant]
     Active Substance: TREPROSTINIL
     Indication: Pulmonary arterial hypertension
     Dosage: 16 MICROGRAM, FOUR TIME A DAY
     Dates: start: 2025, end: 2025
  3. TYVASO DPI [Concomitant]
     Active Substance: TREPROSTINIL
     Dosage: ALTERNATING 16 ?G PER SESSION WITH 32 ?G PER SESSION, FOUR TIME A DAY
     Dates: start: 2025, end: 2025
  4. TYVASO DPI [Concomitant]
     Active Substance: TREPROSTINIL
     Dosage: 32 MICROGRAM, FOUR TIME A DAY
     Dates: start: 2025, end: 2025
  5. TYVASO DPI [Concomitant]
     Active Substance: TREPROSTINIL
     Dosage: 48 MICROGRAM (16 ?G + 32 ?G), FOUR TIME A DAY
     Dates: start: 2025, end: 2025
  6. TYVASO DPI [Concomitant]
     Active Substance: TREPROSTINIL
     Dates: start: 20250102, end: 20250630
  7. TYVASO DPI [Concomitant]
     Active Substance: TREPROSTINIL
  8. TYVASO DPI [Concomitant]
     Active Substance: TREPROSTINIL
  9. TYVASO DPI [Concomitant]
     Active Substance: TREPROSTINIL
  10. TREPROSTINIL [Concomitant]
     Active Substance: TREPROSTINIL
     Indication: Pulmonary arterial hypertension
     Dosage: 26.5 MICROGRAM, FOUR TIME A DAY
     Route: 065
     Dates: start: 2025, end: 20250703
  11. TREPROSTINIL [Concomitant]
     Active Substance: TREPROSTINIL
     Dosage: 53 MICROGRAM, FOUR TIME A DAY
     Route: 065
     Dates: start: 20250703, end: 202507
  12. TREPROSTINIL [Concomitant]
     Active Substance: TREPROSTINIL
     Route: 065
     Dates: start: 202507, end: 2025
  13. TREPROSTINIL [Concomitant]
     Active Substance: TREPROSTINIL
     Route: 065
     Dates: start: 2025, end: 2025
  14. TREPROSTINIL [Concomitant]
     Active Substance: TREPROSTINIL
     Route: 065
     Dates: start: 2025, end: 2025
  15. TREPROSTINIL [Concomitant]
     Active Substance: TREPROSTINIL
     Route: 065
     Dates: start: 2025
  16. TREPROSTINIL [Concomitant]
     Active Substance: TREPROSTINIL
     Route: 065
     Dates: start: 202507
  17. SPIRIVA RESPIMAT [Concomitant]
     Active Substance: TIOTROPIUM BROMIDE
     Indication: Product used for unknown indication
     Route: 065
  18. SYSTANE (HYPROMELLOSE 2910 (4000 MPA.S)) [Concomitant]
     Active Substance: HYPROMELLOSE 2910 (4000 MPA.S)
     Indication: Product used for unknown indication
     Route: 065
  19. SILDENAFIL CITRATE [Concomitant]
     Active Substance: SILDENAFIL CITRATE
     Indication: Product used for unknown indication
     Route: 065
  20. ALLEGRA [Concomitant]
     Active Substance: FEXOFENADINE HYDROCHLORIDE
     Indication: Product used for unknown indication
     Route: 065
  21. DALIRESP [Concomitant]
     Active Substance: ROFLUMILAST
     Indication: Chronic obstructive pulmonary disease
     Route: 065
     Dates: start: 2025
  22. FLONASE [Concomitant]
     Active Substance: FLUTICASONE PROPIONATE
     Indication: Product used for unknown indication
     Route: 065
  23. ZYRTEC [Concomitant]
     Active Substance: CETIRIZINE HYDROCHLORIDE
     Indication: Product used for unknown indication
     Route: 065
  24. FAMOTIDINE [Concomitant]
     Active Substance: FAMOTIDINE
     Indication: Product used for unknown indication
     Route: 065
  25. ALBUTEROL\IPRATROPIUM [Concomitant]
     Active Substance: ALBUTEROL\IPRATROPIUM
     Indication: Product used for unknown indication
     Route: 065
  26. PANTOPRAZOLE SODIUM [Concomitant]
     Active Substance: PANTOPRAZOLE SODIUM
     Indication: Product used for unknown indication
     Route: 065
  27. VITAMINS [Concomitant]
     Active Substance: VITAMINS
     Indication: Product used for unknown indication
     Route: 065
  28. VITAMIN D3 [Concomitant]
     Active Substance: CHOLECALCIFEROL
     Indication: Product used for unknown indication
     Route: 065
  29. LEVOTHYROXINE SODIUM [Concomitant]
     Active Substance: LEVOTHYROXINE SODIUM
     Indication: Product used for unknown indication
     Route: 065
  30. ATORVASTATIN CALCIUM [Concomitant]
     Active Substance: ATORVASTATIN CALCIUM
     Indication: Product used for unknown indication
     Route: 065
  31. ALBUTEROL SULFATE [Concomitant]
     Active Substance: ALBUTEROL SULFATE
     Indication: Product used for unknown indication
     Route: 065
  32. Citracal + D3 [Concomitant]
     Indication: Product used for unknown indication
     Route: 065
  33. OXYGEN [Concomitant]
     Active Substance: OXYGEN
     Indication: Product used for unknown indication
     Route: 065
  34. OXYGEN [Concomitant]
     Active Substance: OXYGEN
     Route: 065
  35. OXYGEN [Concomitant]
     Active Substance: OXYGEN
     Route: 065
  36. ASPIRIN [Concomitant]
     Active Substance: ASPIRIN
     Indication: Product used for unknown indication
     Route: 065
  37. SYMBICORT [Concomitant]
     Active Substance: BUDESONIDE\FORMOTEROL FUMARATE DIHYDRATE
     Indication: Product used for unknown indication
     Route: 065
  38. finapod [Concomitant]
     Indication: Product used for unknown indication
     Route: 065

REACTIONS (1)
  - Therapeutic product effect incomplete [Unknown]
